FAERS Safety Report 8210247-4 (Version None)
Quarter: 2012Q1

REPORT INFORMATION
  Report Type: 
  Country: None (occurrence: None)
  Receive Date: 20120314
  Receipt Date: 20110824
  Transmission Date: 20120608
  Serious: No
  Sender: FDA-Public Use
  Company Number: US-ASTRAZENECA-2011SE50888

PATIENT
  Age: 49 Year
  Sex: Male
  Weight: 79.4 kg

DRUGS (1)
  1. METOPROLOL SUCCINATE [Suspect]
     Indication: BLOOD PRESSURE
     Route: 048

REACTIONS (1)
  - HEART RATE IRREGULAR [None]
